FAERS Safety Report 20070387 (Version 2)
Quarter: 2021Q4

REPORT INFORMATION
  Report Type: Report from Study
  Country: FR (occurrence: FR)
  Receive Date: 20211115
  Receipt Date: 20211206
  Transmission Date: 20220303
  Serious: Yes (Hospitalization)
  Sender: FDA-Public Use
  Company Number: FR-BRISTOL-MYERS SQUIBB COMPANY-BMS-2021-104534

PATIENT
  Age: 57 Year
  Sex: Male
  Weight: 75 kg

DRUGS (15)
  1. RELATLIMAB [Suspect]
     Active Substance: RELATLIMAB
     Indication: Non-small cell lung cancer
     Dosage: 100 MILLILITER
     Route: 042
     Dates: start: 20210908
  2. NIVOLUMAB [Suspect]
     Active Substance: NIVOLUMAB
     Indication: Non-small cell lung cancer
     Dosage: 100 MILLILITER
     Route: 042
     Dates: start: 20210908
  3. CARBOPLATIN [Suspect]
     Active Substance: CARBOPLATIN
     Indication: Non-small cell lung cancer
     Dosage: 795 MILLIGRAM
     Route: 065
     Dates: start: 20210908
  4. PACLITAXEL [Suspect]
     Active Substance: PACLITAXEL
     Indication: Non-small cell lung cancer
     Dosage: 390 MILLIGRAM
     Route: 065
     Dates: start: 20210908
  5. KARDEGIC [Concomitant]
     Active Substance: ASPIRIN DL-LYSINE
     Indication: Product used for unknown indication
     Dosage: 160 MILLIGRAM, QD
     Route: 048
     Dates: start: 2021, end: 20211103
  6. SPIRIVA [Concomitant]
     Active Substance: TIOTROPIUM BROMIDE MONOHYDRATE
     Indication: Product used for unknown indication
     Dosage: 1 DOSAGE FORM=18 UNIT NOS, QD
     Route: 055
     Dates: start: 2021
  7. TRAMADOL [Concomitant]
     Active Substance: TRAMADOL
     Indication: Product used for unknown indication
     Dosage: 50 MILLIGRAM, AS  NEEDED
     Route: 048
     Dates: start: 2021
  8. INNOHEP [Concomitant]
     Active Substance: TINZAPARIN SODIUM
     Indication: Product used for unknown indication
     Dosage: 1 DOSAGE FORM: 13000 UNIT NOS
     Route: 058
     Dates: start: 202108, end: 20211103
  9. LEVOCARNIL [LEVOCARNITINE HYDROCHLORIDE] [Concomitant]
     Indication: Product used for unknown indication
     Dosage: 1 DOSAGE FORM=10 UNITS NOS
     Route: 048
     Dates: start: 20210928
  10. METHYLPREDNISOLONE [Concomitant]
     Active Substance: METHYLPREDNISOLONE
     Indication: Product used for unknown indication
     Dosage: 40 MILLIGRAM, QD
     Route: 042
     Dates: start: 20210929, end: 20210929
  11. POLYETHYLENE GLYCOL 3350\POTASSIUM CHLORIDE\SODIUM BICARBONATE\SODIUM [Concomitant]
     Active Substance: POLYETHYLENE GLYCOL 3350\POTASSIUM CHLORIDE\SODIUM BICARBONATE\SODIUM CHLORIDE
     Indication: Product used for unknown indication
     Dosage: 13.125 GRAM, BID
     Route: 048
     Dates: start: 20210928
  12. POLARAMINE [Concomitant]
     Active Substance: DEXCHLORPHENIRAMINE MALEATE
     Indication: Product used for unknown indication
     Dosage: 5 MILLIGRAM, QD
     Route: 042
     Dates: start: 20210929, end: 20210929
  13. ACETAMINOPHEN [Concomitant]
     Active Substance: ACETAMINOPHEN
     Indication: Product used for unknown indication
     Dosage: 1000 MILLIGRAM,AS NEEDED
     Route: 048
     Dates: start: 2021
  14. ONDANSETRON [Concomitant]
     Active Substance: ONDANSETRON
     Indication: Product used for unknown indication
     Dosage: 8 MILLIGRAM, BID
     Route: 048
     Dates: start: 20210930, end: 20211002
  15. PRIMPERAN [Concomitant]
     Active Substance: METOCLOPRAMIDE HYDROCHLORIDE
     Indication: Product used for unknown indication
     Dosage: 10 MILLIGRAM,AS NEEDED
     Route: 048
     Dates: start: 20210827

REACTIONS (1)
  - Peripheral ischaemia [Not Recovered/Not Resolved]

NARRATIVE: CASE EVENT DATE: 20211004
